FAERS Safety Report 9182809 (Version 1)
Quarter: 2012Q4

REPORT INFORMATION
  Report Type: 
  Country: MX (occurrence: MX)
  Receive Date: 20121030
  Receipt Date: 20121030
  Transmission Date: 20130627
  Serious: Yes (Other)
  Sender: FDA-Public Use
  Company Number: PHHY2012MX097290

PATIENT
  Age: 61 Year
  Sex: Female

DRUGS (2)
  1. CO-DIOVAN [Suspect]
     Indication: HYPERTENSION
     Dosage: 1 DF(80/12.5mg), daily
  2. DIOVAN [Suspect]

REACTIONS (1)
  - Breast cancer [Not Recovered/Not Resolved]
